FAERS Safety Report 5022857-6 (Version None)
Quarter: 2006Q2

REPORT INFORMATION
  Report Type: 
  Country: None (occurrence: None)
  Receive Date: 20060426
  Receipt Date: 20060323
  Transmission Date: 20061013
  Serious: Yes (Other)
  Sender: FDA-Public Use
  Company Number: 2006041459

PATIENT
  Age: 37 Year
  Sex: Female
  Weight: 61.6892 kg

DRUGS (5)
  1. LYRICA [Suspect]
     Indication: NEURALGIA
     Dosage: 300 MG (150 MG,2 IN 1 D),ORAL
     Route: 048
     Dates: start: 20060201
  2. TOPAMAX [Concomitant]
  3. TOPROL-XL [Concomitant]
  4. PERCOCET [Concomitant]
  5. FLEXERIL [Concomitant]

REACTIONS (6)
  - CONFUSIONAL STATE [None]
  - DIFFICULTY IN WALKING [None]
  - DIZZINESS [None]
  - HALLUCINATION [None]
  - NERVOUSNESS [None]
  - WEIGHT INCREASED [None]
